FAERS Safety Report 13027782 (Version 1)
Quarter: 2016Q4

REPORT INFORMATION
  Report Type: Spontaneous
  Country: PK (occurrence: PK)
  Receive Date: 20161214
  Receipt Date: 20161214
  Transmission Date: 20170207
  Serious: Yes (Hospitalization)
  Sender: FDA-Public Use
  Company Number: PK-CELGENEUS-PAK-2016118606

PATIENT
  Age: 51 Year
  Sex: Female

DRUGS (1)
  1. THALIDOMIDE CELGENE [Suspect]
     Active Substance: THALIDOMIDE
     Indication: PLASMA CELL MYELOMA
     Dosage: UNKNOWN
     Route: 048

REACTIONS (4)
  - Respiratory acidosis [Recovered/Resolved]
  - Asthma [Recovered/Resolved]
  - Respiratory distress [Recovered/Resolved]
  - Stress cardiomyopathy [Recovered/Resolved]
